FAERS Safety Report 9528849 (Version 1)
Quarter: 2013Q2

REPORT INFORMATION
  Report Type: Spontaneous
  Country: US (occurrence: None)
  Receive Date: 20130401
  Receipt Date: 20130401
  Transmission Date: 20140414
  Serious: Yes (Other)
  Sender: FDA-Public Use
  Company Number: PHEH2012US024021

PATIENT
  Age: 72 Year
  Sex: Female

DRUGS (5)
  1. EXELON PATCH (RIVASTIGMINE) TRANS-THERAPEUTIC-SYSTEM [Suspect]
     Route: 062
  2. VITAMIN C (ASCORBIN ACID) [Suspect]
  3. OMEGA 3 FISH OIL (FISH OIL) [Suspect]
  4. BABY ASPIRIN (ACETYLSALICYLIC ACID) [Suspect]
  5. OMEPRAZOLE (OMEPRAZOLE) [Concomitant]

REACTIONS (7)
  - Syncope [None]
  - Blood glucose increased [None]
  - Feeling abnormal [None]
  - Crying [None]
  - Malaise [None]
  - Nausea [None]
  - Decreased appetite [None]
